FAERS Safety Report 21126292 (Version 1)
Quarter: 2022Q3

REPORT INFORMATION
  Report Type: Spontaneous
  Country: US (occurrence: US)
  Receive Date: 20220725
  Receipt Date: 20220725
  Transmission Date: 20221026
  Serious: Yes (Other)
  Sender: FDA-Public Use
  Company Number: US-009507513-2207USA003902

PATIENT
  Age: 55 Year
  Sex: Male

DRUGS (14)
  1. PRINIVIL [Suspect]
     Active Substance: LISINOPRIL
     Route: 048
  2. ACETAMINOPHEN [Concomitant]
     Active Substance: ACETAMINOPHEN
  3. ASPIRIN [Concomitant]
     Active Substance: ASPIRIN
  4. ATORVASTATIN [Concomitant]
     Active Substance: ATORVASTATIN
  5. CARVEDILOL [Concomitant]
     Active Substance: CARVEDILOL
  6. CEFAZOLIN [Concomitant]
     Active Substance: CEFAZOLIN
  7. CINACALCET [Concomitant]
     Active Substance: CINACALCET
  8. DEXTROMETHORPHAN [Concomitant]
     Active Substance: DEXTROMETHORPHAN
  9. HEPARIN [Concomitant]
     Active Substance: HEPARIN SODIUM
  10. HYDRALAZINE [Concomitant]
     Active Substance: HYDRALAZINE HYDROCHLORIDE
  11. LEVOTHYROXINE [Concomitant]
     Active Substance: LEVOTHYROXINE
  12. MELATONIN [Concomitant]
     Active Substance: MELATONIN
  13. METOCLOPRAMIDE [Concomitant]
     Active Substance: METOCLOPRAMIDE
  14. SEVELAMER [Concomitant]
     Active Substance: SEVELAMER

REACTIONS (1)
  - Angioedema [Recovering/Resolving]
